FAERS Safety Report 9030676 (Version 2)
Quarter: 2013Q1

REPORT INFORMATION
  Report Type: Report from Study
  Country: GB (occurrence: GB)
  Receive Date: 20130123
  Receipt Date: 20130208
  Transmission Date: 20140127
  Serious: Yes (Hospitalization, Disabling)
  Sender: FDA-Public Use
  Company Number: GB-TEVA-382025USA

PATIENT
  Age: 71 Year
  Sex: Male
  Weight: 70 kg

DRUGS (4)
  1. TREANDA [Suspect]
     Indication: NON-HODGKIN^S LYMPHOMA
     Route: 042
     Dates: start: 20110301
  2. RITUXIMAB [Suspect]
     Indication: NON-HODGKIN^S LYMPHOMA
     Route: 042
     Dates: start: 20110301
  3. ASPIRIN [Concomitant]
     Dates: start: 20110824
  4. COTRIMOXAZOLE [Concomitant]
     Dates: start: 20110824

REACTIONS (3)
  - Cerebral infarction [Recovered/Resolved with Sequelae]
  - Hemiparesis [Unknown]
  - Progressive multifocal leukoencephalopathy [Not Recovered/Not Resolved]
